FAERS Safety Report 11455831 (Version 2)
Quarter: 2016Q1

REPORT INFORMATION
  Report Type: Spontaneous
  Country: US (occurrence: US)
  Receive Date: 20150903
  Receipt Date: 20160324
  Transmission Date: 20160525
  Serious: Yes (Hospitalization, Other)
  Sender: FDA-Public Use
  Company Number: US-TEVA-590428USA

PATIENT
  Sex: Female

DRUGS (2)
  1. COPAXONE [Suspect]
     Active Substance: GLATIRAMER ACETATE
     Route: 065
     Dates: start: 20150619
  2. COPAXONE [Suspect]
     Active Substance: GLATIRAMER ACETATE
     Indication: MULTIPLE SCLEROSIS
     Route: 065
     Dates: start: 20020101, end: 201506

REACTIONS (7)
  - Radiation fibrosis [Not Recovered/Not Resolved]
  - Implantable defibrillator insertion [Unknown]
  - Tongue cancer metastatic [Recovered/Resolved with Sequelae]
  - Multiple sclerosis relapse [Unknown]
  - Dysphagia [Not Recovered/Not Resolved]
  - Gastrointestinal tube insertion [Unknown]
  - Lymphadenectomy [Recovered/Resolved]

NARRATIVE: CASE EVENT DATE: 2003
